FAERS Safety Report 24240418 (Version 1)
Quarter: 2024Q3

REPORT INFORMATION
  Report Type: Spontaneous
  Country: HU (occurrence: HU)
  Receive Date: 20240822
  Receipt Date: 20240822
  Transmission Date: 20241017
  Serious: Yes (Other)
  Sender: TEVA
  Company Number: HU-TEVA-VS-3233754

PATIENT
  Age: 39 Year
  Sex: Female

DRUGS (1)
  1. DOCETAXEL [Suspect]
     Active Substance: DOCETAXEL\DOCETAXEL ANHYDROUS
     Indication: Hormone receptor positive HER2 negative breast cancer
     Dosage: TIME INTERVAL: CYCLICAL: 12 CYCLES OF 200 MG DOCETAXEL (BASED ON BODY SURFACE - }2 M2)
     Route: 065
     Dates: start: 20200526, end: 20210202

REACTIONS (1)
  - Neutropenia [Unknown]
